FAERS Safety Report 16061930 (Version 1)
Quarter: 2019Q1

REPORT INFORMATION
  Report Type: Spontaneous
  Country: US (occurrence: US)
  Receive Date: 20190312
  Receipt Date: 20190312
  Transmission Date: 20190418
  Serious: Yes (Other)
  Sender: FDA-Public Use
  Company Number: US-BRISTOL-MYERS SQUIBB COMPANY-BMS-2019-023359

PATIENT
  Sex: Female
  Weight: 98.88 kg

DRUGS (2)
  1. ELIQUIS [Suspect]
     Active Substance: APIXABAN
     Indication: CEREBROVASCULAR ACCIDENT PROPHYLAXIS
     Dosage: 5 MILLIGRAM
     Route: 048
     Dates: start: 2018
  2. ELIQUIS [Suspect]
     Active Substance: APIXABAN
     Indication: SUPRAVENTRICULAR TACHYCARDIA
     Dosage: 5 MILLIGRAM, BID
     Route: 048
     Dates: start: 2014

REACTIONS (2)
  - Product use in unapproved indication [Unknown]
  - Cardiac disorder [Unknown]
